FAERS Safety Report 6475860-3 (Version None)
Quarter: 2009Q4

REPORT INFORMATION
  Report Type: 
  Country: None (occurrence: None)
  Receive Date: 20091204
  Receipt Date: 20091125
  Transmission Date: 20100525
  Serious: Yes (Death, Hospitalization, Other)
  Sender: FDA-Public Use
  Company Number: CA-ABBOTT-09P-028-0610825-00

PATIENT
  Sex: Male

DRUGS (12)
  1. LUPRON DEPOT [Suspect]
     Indication: PROSTATE CANCER
     Dates: start: 20050907, end: 20090810
  2. FLOVENT [Concomitant]
     Indication: DRUG USE FOR UNKNOWN INDICATION
  3. SEREVENT [Concomitant]
     Indication: DRUG USE FOR UNKNOWN INDICATION
     Dosage: TWICE A DAY, AS NEEDED
  4. ALBUTEROL [Concomitant]
     Indication: DRUG USE FOR UNKNOWN INDICATION
     Dosage: 2 TIMES DAILY OR 4 TIMES DAILY AS NEEDED
  5. SPIRIVA [Concomitant]
     Indication: DRUG USE FOR UNKNOWN INDICATION
  6. AVALIDE [Concomitant]
     Indication: HYPERTENSION
     Dosage: 300+125 MG, ONCE DAILY
  7. AVALIDE [Concomitant]
     Indication: FLUID RETENTION
  8. APO-FUROSEMIDE [Concomitant]
     Indication: DRUG USE FOR UNKNOWN INDICATION
  9. APO-DIGOXIN [Concomitant]
     Indication: ARRHYTHMIA
  10. APO-CARVEDILOL [Concomitant]
     Indication: HYPERTENSION
     Dosage: 2 IN 1 DAY, 12.5 MG, 1/2 TAB
  11. FLOMAX [Concomitant]
     Indication: DRUG USE FOR UNKNOWN INDICATION
     Route: 048
  12. LIPITOR [Concomitant]
     Indication: DRUG USE FOR UNKNOWN INDICATION
     Route: 048
     Dates: start: 20071101

REACTIONS (3)
  - FALL [None]
  - GROIN PAIN [None]
  - LUNG DISORDER [None]
